FAERS Safety Report 15748505 (Version 2)
Quarter: 2021Q2

REPORT INFORMATION
  Report Type: Other
  Country: FR (occurrence: FR)
  Receive Date: 20181221
  Receipt Date: 20210628
  Transmission Date: 20210716
  Serious: Yes (Other)
  Sender: FDA-Public Use
  Company Number: FR-ROCHE-2233555

PATIENT

DRUGS (1)
  1. VEMURAFENIB. [Suspect]
     Active Substance: VEMURAFENIB
     Indication: LANGERHANS^ CELL HISTIOCYTOSIS
     Route: 065

REACTIONS (17)
  - Dermatitis atopic [Unknown]
  - Hyperkeratosis [Unknown]
  - Melanocytic naevus [Unknown]
  - Alopecia [Unknown]
  - Pruritus [Unknown]
  - Atrophic glossitis [Unknown]
  - Rash [Unknown]
  - Angioedema [Unknown]
  - Urticaria [Unknown]
  - Prurigo [Unknown]
  - Neoplasm [Unknown]
  - Folliculitis [Unknown]
  - Photosensitivity reaction [Unknown]
  - Xerosis [Unknown]
  - Keratosis pilaris [Unknown]
  - Neutrophilic panniculitis [Unknown]
  - Dermatitis acneiform [Unknown]
